FAERS Safety Report 21515026 (Version 1)
Quarter: 2022Q4

REPORT INFORMATION
  Report Type: Report from Study
  Country: AR (occurrence: AR)
  Receive Date: 20221027
  Receipt Date: 20221027
  Transmission Date: 20230113
  Serious: Yes (Other)
  Sender: FDA-Public Use
  Company Number: AR-NOVARTISPH-NVSC2022AR241175

PATIENT
  Age: 60 Year
  Sex: Female

DRUGS (1)
  1. CERTICAN [Suspect]
     Active Substance: EVEROLIMUS
     Indication: Immunosuppression
     Dosage: 0.5 MG, Q12H
     Route: 048
     Dates: start: 20090420

REACTIONS (9)
  - Coma [Unknown]
  - COVID-19 [Unknown]
  - Type 2 diabetes mellitus [Unknown]
  - Kidney infection [Unknown]
  - Rash [Unknown]
  - Influenza [Unknown]
  - Nasal congestion [Unknown]
  - Chest discomfort [Unknown]
  - Incorrect dose administered [Unknown]

NARRATIVE: CASE EVENT DATE: 20190101
